FAERS Safety Report 13541399 (Version 7)
Quarter: 2018Q2

REPORT INFORMATION
  Report Type: Spontaneous
  Country: US (occurrence: US)
  Receive Date: 20170512
  Receipt Date: 20180516
  Transmission Date: 20180711
  Serious: Yes (Other)
  Sender: FDA-Public Use
  Company Number: US-ASTRAZENECA-2015SF13846

PATIENT
  Age: 22587 Day
  Sex: Male
  Weight: 70.3 kg

DRUGS (16)
  1. ROFLUMILAST. [Suspect]
     Active Substance: ROFLUMILAST
     Indication: CHRONIC OBSTRUCTIVE PULMONARY DISEASE
     Route: 048
     Dates: start: 20141003
  2. PREDNISOLONE. [Concomitant]
     Active Substance: PREDNISOLONE
     Dosage: 20-30 MG PER DAY
  3. TUDORZA PRESSAIR [Suspect]
     Active Substance: ACLIDINIUM BROMIDE
     Indication: CHRONIC OBSTRUCTIVE PULMONARY DISEASE
     Route: 055
     Dates: start: 201704
  4. XOPENEX [Concomitant]
     Active Substance: LEVALBUTEROL HYDROCHLORIDE
  5. LEVOSALBUTAMOL [Concomitant]
     Active Substance: LEVALBUTEROL
     Dosage: GENERIC
  6. PREDNISOLONE. [Concomitant]
     Active Substance: PREDNISOLONE
  7. TUDORZA PRESSAIR [Suspect]
     Active Substance: ACLIDINIUM BROMIDE
     Indication: CHRONIC OBSTRUCTIVE PULMONARY DISEASE
     Route: 055
     Dates: start: 201710
  8. LYRICA [Concomitant]
     Active Substance: PREGABALIN
  9. DOXAZOSIN [Concomitant]
     Active Substance: DOXAZOSIN\DOXAZOSIN MESYLATE
     Indication: BENIGN PROSTATIC HYPERPLASIA
  10. HYDROCODONE [Concomitant]
     Active Substance: HYDROCODONE
     Dosage: 7.5MG EVERY 6 HOURS AS NEEDED WAS INCREASED YESTERDAY TO 10MG 4 TIMES PER DAY BUT HE HAS NOT YET ...
  11. AMLODIPINE [Concomitant]
     Active Substance: AMLODIPINE BESYLATE
  12. ROFLUMILAST. [Suspect]
     Active Substance: ROFLUMILAST
     Indication: CHRONIC OBSTRUCTIVE PULMONARY DISEASE
     Dosage: 500 MCG
     Route: 048
     Dates: start: 20141001, end: 20141002
  13. SINGULAIR [Concomitant]
     Active Substance: MONTELUKAST SODIUM
  14. TUDORZA PRESSAIR [Suspect]
     Active Substance: ACLIDINIUM BROMIDE
     Indication: CHRONIC OBSTRUCTIVE PULMONARY DISEASE
     Route: 055
  15. ATROVENT [Concomitant]
     Active Substance: IPRATROPIUM BROMIDE
     Indication: CHRONIC OBSTRUCTIVE PULMONARY DISEASE
     Dosage: 2 PUFFS TWICE A DAY
     Route: 055
  16. BREO ELLIPTA [Concomitant]
     Active Substance: FLUTICASONE FUROATE\VILANTEROL TRIFENATATE

REACTIONS (17)
  - Dizziness [Recovering/Resolving]
  - Palpitations [Unknown]
  - Seasonal allergy [Unknown]
  - Back pain [Unknown]
  - Intentional device misuse [Not Recovered/Not Resolved]
  - Dysuria [Unknown]
  - Spinal column stenosis [Unknown]
  - Back injury [Unknown]
  - Drug dose omission [Unknown]
  - Device malfunction [Unknown]
  - Chronic obstructive pulmonary disease [Unknown]
  - Spinal compression fracture [Unknown]
  - Intentional product misuse [Not Recovered/Not Resolved]
  - Confusional state [Unknown]
  - Dyspnoea [Unknown]
  - Blood pressure increased [Unknown]
  - Bronchitis [Unknown]

NARRATIVE: CASE EVENT DATE: 20141001
